FAERS Safety Report 17153606 (Version 4)
Quarter: 2020Q1

REPORT INFORMATION
  Report Type: Report from Study
  Country: US (occurrence: US)
  Receive Date: 20191213
  Receipt Date: 20200205
  Transmission Date: 20200409
  Serious: Yes (Other)
  Sender: FDA-Public Use
  Company Number: US-BAYER-2019-214135

PATIENT
  Age: 64 Year
  Sex: Female

DRUGS (5)
  1. STIVARGA [Suspect]
     Active Substance: REGORAFENIB
     Indication: COLORECTAL CANCER
     Dosage: DAILY DOSE 80 MG 21 DAYS ON 7 DAYS OFF
     Route: 048
     Dates: start: 20191113, end: 2019
  2. STIVARGA [Suspect]
     Active Substance: REGORAFENIB
     Indication: COLORECTAL CANCER
     Dosage: 160 MG, QD (3 WEEKS ON 1 WEEK OFF)
     Route: 048
     Dates: start: 20200108
  3. FARXIGA [Suspect]
     Active Substance: DAPAGLIFLOZIN PROPANEDIOL
     Dosage: UNK
  4. FARXIGA [Suspect]
     Active Substance: DAPAGLIFLOZIN PROPANEDIOL
     Dosage: UNK
  5. STIVARGA [Suspect]
     Active Substance: REGORAFENIB
     Indication: COLORECTAL CANCER
     Dosage: DAILY DOSE 120 MG 3 WEEKS ON 1 WEEK OFF
     Route: 048
     Dates: start: 201912

REACTIONS (11)
  - Neuropathy peripheral [None]
  - Back pain [Recovering/Resolving]
  - Dry skin [Not Recovered/Not Resolved]
  - Glycosylated haemoglobin decreased [None]
  - Off label use [None]
  - Pain in extremity [Not Recovered/Not Resolved]
  - Apathy [Not Recovered/Not Resolved]
  - Abdominal pain [Not Recovered/Not Resolved]
  - Exercise tolerance decreased [None]
  - Pain in extremity [Not Recovered/Not Resolved]
  - Fatigue [Not Recovered/Not Resolved]

NARRATIVE: CASE EVENT DATE: 20191113
